FAERS Safety Report 8583397-0 (Version None)
Quarter: 2012Q3

REPORT INFORMATION
  Report Type: 
  Country: None (occurrence: None)
  Receive Date: 20120809
  Receipt Date: 20120726
  Transmission Date: 20120928
  Serious: Yes (Other)
  Sender: FDA-Public Use
  Company Number: KR-WATSON-2012-13752

PATIENT
  Age: 6 Month
  Sex: Female

DRUGS (1)
  1. VALPROATE SODIUM [Suspect]
     Indication: CONVULSION
     Dosage: 30 MG/KG, DAILY
     Route: 065

REACTIONS (3)
  - HYPOGAMMAGLOBULINAEMIA [None]
  - PETECHIAE [None]
  - PANCYTOPENIA [None]
